FAERS Safety Report 8169269-4 (Version None)
Quarter: 2012Q1

REPORT INFORMATION
  Report Type: 
  Country: None (occurrence: None)
  Receive Date: 20120228
  Receipt Date: 20120222
  Transmission Date: 20120608
  Serious: Yes (Death)
  Sender: FDA-Public Use
  Company Number: US-ASTRAZENECA-2012SE12071

PATIENT
  Sex: Female

DRUGS (2)
  1. MOTRIN [Suspect]
  2. NEXIUM [Suspect]
     Indication: DYSPEPSIA
     Route: 048

REACTIONS (1)
  - GASTRIC ULCER [None]
